FAERS Safety Report 4842596-1 (Version None)
Quarter: 2005Q4

REPORT INFORMATION
  Report Type: 
  Country: None (occurrence: None)
  Receive Date: 20051201
  Receipt Date: 20051118
  Transmission Date: 20060501
  Serious: Yes (Death)
  Sender: FDA-Public Use
  Company Number: US-GLAXOSMITHKLINE-A0583938A

PATIENT
  Age: 10 Year
  Sex: Male
  Weight: 40.9 kg

DRUGS (6)
  1. ADVAIR DISKUS 100/50 [Suspect]
     Indication: ASTHMA
     Dosage: 1PUFF TWICE PER DAY
     Route: 055
     Dates: start: 20030505
  2. CONCERTA [Concomitant]
     Indication: ATTENTION DEFICIT/HYPERACTIVITY DISORDER
     Dosage: 36MG PER DAY
     Route: 048
  3. ELIDEL [Concomitant]
     Indication: ECZEMA
     Route: 061
  4. ALBUTEROL [Concomitant]
     Indication: ASTHMA
     Route: 055
  5. CLARINEX [Concomitant]
     Dosage: 1TAB PER DAY
     Route: 048
  6. AUGMENTIN [Concomitant]
     Indication: TOOTH ABSCESS
     Route: 048

REACTIONS (1)
  - ASTHMA [None]
